FAERS Safety Report 9830462 (Version 3)
Quarter: 2014Q2

REPORT INFORMATION
  Report Type: Report from Study
  Country: US (occurrence: US)
  Receive Date: 20140120
  Receipt Date: 20140507
  Transmission Date: 20141212
  Serious: Yes (Hospitalization)
  Sender: FDA-Public Use
  Company Number: US-ABBVIE-13P-163-1138547-00

PATIENT
  Age: 59 Year
  Sex: Female
  Weight: 97.61 kg

DRUGS (16)
  1. HUMIRA [Suspect]
     Indication: CROHN^S DISEASE
     Route: 058
     Dates: start: 20130817, end: 20130817
  2. HUMIRA [Suspect]
     Route: 058
     Dates: start: 20130915
  3. STEROIDS [Suspect]
     Indication: PRODUCT USED FOR UNKNOWN INDICATION
  4. NORCO [Concomitant]
     Indication: BACK PAIN
     Dosage: 10/325 MG EVERY 4-6 HOURS
     Route: 048
  5. TRAMADOL [Concomitant]
     Indication: BACK PAIN
     Dosage: 1-2 QID
     Route: 048
  6. GABAPENTIN [Concomitant]
     Indication: HYPOAESTHESIA
     Route: 048
  7. DICYCLOMINE [Concomitant]
     Indication: CROHN^S DISEASE
     Route: 048
  8. PRILOSEC [Concomitant]
     Indication: DYSPEPSIA
     Route: 048
  9. FERROUS SULFATE [Concomitant]
     Indication: ANAEMIA
     Route: 048
  10. NASONEX [Concomitant]
     Indication: SINUS CONGESTION
     Dosage: 1 SQUIRT EACH NARE
     Route: 045
  11. ALBUTEROL [Concomitant]
     Indication: EMPHYSEMA
  12. EYE DROP MEDICATION [Concomitant]
     Indication: ULCERATIVE KERATITIS
  13. EYE DROP MEDICATION [Concomitant]
     Indication: ULCERATIVE KERATITIS
  14. VITAMIN D NOS [Concomitant]
     Indication: VITAMIN D DECREASED
     Route: 048
  15. BENTYL [Concomitant]
     Indication: PRODUCT USED FOR UNKNOWN INDICATION
  16. ALEVE [Concomitant]
     Indication: PRODUCT USED FOR UNKNOWN INDICATION
     Dosage: 4 AS NEEDED

REACTIONS (23)
  - Chronic obstructive pulmonary disease [Unknown]
  - Hyperglycaemia [Unknown]
  - Bronchitis [Unknown]
  - Pneumonia [Unknown]
  - Respiratory disorder [Not Recovered/Not Resolved]
  - Respiratory tract congestion [Not Recovered/Not Resolved]
  - Cough [Not Recovered/Not Resolved]
  - Productive cough [Not Recovered/Not Resolved]
  - Rhinorrhoea [Not Recovered/Not Resolved]
  - Nasal discomfort [Not Recovered/Not Resolved]
  - Paraesthesia [Not Recovered/Not Resolved]
  - Hypoaesthesia [Not Recovered/Not Resolved]
  - Mobility decreased [Unknown]
  - Anxiety [Unknown]
  - Haematochezia [Not Recovered/Not Resolved]
  - Mass [Unknown]
  - Drug ineffective [Not Recovered/Not Resolved]
  - Diarrhoea [Not Recovered/Not Resolved]
  - Abdominal distension [Not Recovered/Not Resolved]
  - Unevaluable event [Not Recovered/Not Resolved]
  - Pain in extremity [Not Recovered/Not Resolved]
  - Arthralgia [Unknown]
  - Crohn^s disease [Unknown]
